FAERS Safety Report 12967709 (Version 3)
Quarter: 2017Q1

REPORT INFORMATION
  Report Type: Spontaneous
  Country: US (occurrence: US)
  Receive Date: 20161123
  Receipt Date: 20170206
  Transmission Date: 20170428
  Serious: Yes (Death, Other)
  Sender: FDA-Public Use
  Company Number: US-AUROBINDO-AUR-APL-2016-14221

PATIENT
  Age: 5 Decade
  Sex: Male

DRUGS (2)
  1. TEMAZEPAM. [Suspect]
     Active Substance: TEMAZEPAM
     Indication: SLEEP DISORDER
     Dosage: 15-30 MG
     Route: 065
  2. SIMVASTATIN 80MG [Suspect]
     Active Substance: SIMVASTATIN
     Indication: HYPERLIPIDAEMIA
     Dosage: 80 MG, UNK
     Route: 065

REACTIONS (15)
  - Temperature regulation disorder [Unknown]
  - Non-alcoholic fatty liver [Unknown]
  - Chest discomfort [Unknown]
  - Impatience [Unknown]
  - Depressed mood [Unknown]
  - Anxiety [Unknown]
  - Insomnia [Unknown]
  - Nausea [Unknown]
  - Fatigue [Unknown]
  - Cognitive disorder [Unknown]
  - Rash [Unknown]
  - Irritability [Unknown]
  - Dissociation [Unknown]
  - Completed suicide [Fatal]
  - Adjustment disorder [Unknown]
